FAERS Safety Report 16344848 (Version 4)
Quarter: 2019Q3

REPORT INFORMATION
  Report Type: Spontaneous
  Country: US (occurrence: US)
  Receive Date: 20190522
  Receipt Date: 20190720
  Transmission Date: 20191004
  Serious: No
  Sender: FDA-Public Use
  Company Number: US-CELGENEUS-USA-20190506059

PATIENT
  Age: 60 Year
  Sex: Male

DRUGS (4)
  1. OTEZLA [Suspect]
     Active Substance: APREMILAST
     Indication: PSORIATIC ARTHROPATHY
     Dosage: (DAY 1 FROM PACK ONE AND DAY 1 FROM PACK TWO (TAKING ANOTHER 10 MG TABLET)
     Route: 048
     Dates: start: 20190514
  2. OTEZLA [Suspect]
     Active Substance: APREMILAST
     Indication: PSORIASIS
     Dosage: TITRATION PACK
     Route: 048
     Dates: start: 20190425
  3. OTEZLA [Suspect]
     Active Substance: APREMILAST
     Dosage: 10,20,30 MG (TITRATING OVER 15 DAYS WITH 3 STARTER PACK)
     Route: 048
     Dates: start: 201906
  4. OTEZLA [Suspect]
     Active Substance: APREMILAST
     Dosage: 10,20,30 MG (TITRATING OVER 15 DAYS WITH 3 STARTER PACK)
     Route: 048
     Dates: start: 20190516

REACTIONS (5)
  - Abdominal discomfort [Recovering/Resolving]
  - Nausea [Recovering/Resolving]
  - Expired product administered [Unknown]
  - Diarrhoea [Recovering/Resolving]
  - Tension headache [Recovering/Resolving]

NARRATIVE: CASE EVENT DATE: 201905
